FAERS Safety Report 13919156 (Version 1)
Quarter: 2017Q3

REPORT INFORMATION
  Report Type: Spontaneous
  Country: US (occurrence: None)
  Receive Date: 20170828
  Receipt Date: 20170828
  Transmission Date: 20171127
  Serious: Yes (Hospitalization)
  Sender: FDA-Public Use
  Company Number: None

PATIENT
  Age: 83 Year
  Sex: Male

DRUGS (2)
  1. WARFARIN [Suspect]
     Active Substance: WARFARIN
     Indication: MITRAL VALVE REPLACEMENT
     Route: 048
     Dates: start: 20130628, end: 20170608
  2. WARFARIN [Suspect]
     Active Substance: WARFARIN
     Indication: ATRIAL FIBRILLATION
     Route: 048
     Dates: start: 20130628, end: 20170608

REACTIONS (7)
  - Hemiparesis [None]
  - Communication disorder [None]
  - Cerebral haemorrhage [None]
  - Dizziness [None]
  - Loss of personal independence in daily activities [None]
  - Cerebrovascular accident [None]
  - Thalamus haemorrhage [None]

NARRATIVE: CASE EVENT DATE: 20170608
